FAERS Safety Report 5046981-7 (Version None)
Quarter: 2006Q2

REPORT INFORMATION
  Report Type: 
  Country: None (occurrence: None)
  Receive Date: 20060630
  Receipt Date: 20060626
  Transmission Date: 20061013
  Serious: Yes (Hospitalization)
  Sender: FDA-Public Use
  Company Number: 2006080080

PATIENT
  Age: 69 Year
  Sex: Male

DRUGS (2)
  1. LIPITOR [Suspect]
     Indication: HYPERLIPIDAEMIA
     Dosage: 10 MG (PER DAY) ORAL
     Route: 048
     Dates: start: 20060501, end: 20060603
  2. WARFARIN SODIUM [Suspect]
     Indication: CEREBRAL INFARCTION
     Dosage: 4.5 MG (PER DAY) ORAL
     Route: 048

REACTIONS (7)
  - CONJUNCTIVAL HAEMORRHAGE [None]
  - DRUG EFFECT INCREASED [None]
  - HAEMORRHAGIC DIATHESIS [None]
  - HYPERLIPIDAEMIA [None]
  - INTERNATIONAL NORMALISED RATIO INCREASED [None]
  - MELAENA [None]
  - PROTHROMBIN TIME PROLONGED [None]
